FAERS Safety Report 13304122 (Version 1)
Quarter: 2017Q1

REPORT INFORMATION
  Report Type: Spontaneous
  Country: AT (occurrence: AT)
  Receive Date: 20170308
  Receipt Date: 20170308
  Transmission Date: 20170428
  Serious: Yes (Other)
  Sender: FDA-Public Use
  Company Number: AT-SUN PHARMACEUTICAL INDUSTRIES LTD-2017R1-135262

PATIENT
  Age: 69 Year
  Sex: Female

DRUGS (1)
  1. DOCETAXEL. [Suspect]
     Active Substance: DOCETAXEL
     Indication: BREAST CANCER
     Dosage: EVERY 3 WEEKS
     Route: 065

REACTIONS (4)
  - Traumatic haematoma [Unknown]
  - Febrile neutropenia [Unknown]
  - Paronychia [Unknown]
  - Nail dystrophy [Unknown]
